FAERS Safety Report 11193077 (Version 3)
Quarter: 2015Q4

REPORT INFORMATION
  Report Type: Spontaneous
  Country: US (occurrence: US)
  Receive Date: 20150616
  Receipt Date: 20151201
  Transmission Date: 20160304
  Serious: Yes (Hospitalization, Other)
  Sender: FDA-Public Use
  Company Number: US-BAYER-2015-350215

PATIENT
  Age: 25 Year
  Sex: Female
  Weight: 61.22 kg

DRUGS (3)
  1. COLACE [Concomitant]
     Active Substance: DOCUSATE SODIUM
     Indication: CONSTIPATION
  2. PRENATAL VITAMINS [Concomitant]
     Active Substance: VITAMINS
  3. MIRENA [Suspect]
     Active Substance: LEVONORGESTREL
     Indication: CONTRACEPTION
     Dosage: 20 MCG/24HR, CONT
     Route: 015
     Dates: start: 20110406, end: 20110523

REACTIONS (13)
  - Genital haemorrhage [Not Recovered/Not Resolved]
  - Injury [Not Recovered/Not Resolved]
  - Pain [Not Recovered/Not Resolved]
  - Uterine perforation [Not Recovered/Not Resolved]
  - Emotional distress [None]
  - General physical health deterioration [Not Recovered/Not Resolved]
  - Depressed mood [None]
  - Dyspareunia [Not Recovered/Not Resolved]
  - Maternal exposure before pregnancy [None]
  - Complication of pregnancy [None]
  - Device issue [Not Recovered/Not Resolved]
  - Anxiety [None]
  - Device failure [None]

NARRATIVE: CASE EVENT DATE: 20110523
